FAERS Safety Report 8400898 (Version 2)
Quarter: 2013Q1

REPORT INFORMATION
  Report Type: Spontaneous
  Country: US (occurrence: US)
  Receive Date: 20120210
  Receipt Date: 20130219
  Transmission Date: 20140127
  Serious: No
  Sender: FDA-Public Use
  Company Number: US-BRISTOL-MYERS SQUIBB COMPANY-16257180

PATIENT
  Age: 55 Year
  Sex: Female
  Weight: 61.68 kg

DRUGS (9)
  1. ABATACEPT SUBQ INJECTION 125MG/ML [Suspect]
     Indication: RHEUMATOID ARTHRITIS
     Dosage: ABATACEPT SUBQ INJECTION 125MG/ML  1 SYRINGE
     Route: 058
  2. FLONASE [Concomitant]
  3. MULTIVITAMIN [Concomitant]
  4. PREDNISONE [Concomitant]
  5. ROXICODONE [Concomitant]
  6. TIZANIDINE [Concomitant]
  7. TRAMADOL [Concomitant]
  8. VITAMIN D [Concomitant]
  9. ZALEPLON [Concomitant]

REACTIONS (8)
  - Headache [Not Recovered/Not Resolved]
  - Influenza [Unknown]
  - Blister [Unknown]
  - Pyrexia [Unknown]
  - Oropharyngeal pain [Not Recovered/Not Resolved]
  - Stomatitis [Unknown]
  - Nausea [Not Recovered/Not Resolved]
  - Sinusitis [Not Recovered/Not Resolved]
